FAERS Safety Report 9460889 (Version 1)
Quarter: 2013Q3

REPORT INFORMATION
  Report Type: Spontaneous
  Country: US (occurrence: US)
  Receive Date: 20130816
  Receipt Date: 20130816
  Transmission Date: 20140515
  Serious: No
  Sender: FDA-Public Use
  Company Number: US-009507513-1308USA006368

PATIENT
  Sex: Female

DRUGS (2)
  1. ZETIA [Suspect]
     Route: 048
  2. NIACIN [Concomitant]
     Dosage: 110 MG, UNK

REACTIONS (2)
  - Heart rate increased [Unknown]
  - Blood pressure increased [Unknown]
